FAERS Safety Report 12855981 (Version 1)
Quarter: 2016Q4

REPORT INFORMATION
  Report Type: Spontaneous
  Country: US (occurrence: US)
  Receive Date: 20161017
  Receipt Date: 20161017
  Transmission Date: 20170207
  Serious: Yes (Life-Threatening, Hospitalization)
  Sender: FDA-Public Use
  Company Number: None

PATIENT
  Age: 50 Year
  Sex: Male
  Weight: 107 kg

DRUGS (11)
  1. TRUVADA [Suspect]
     Active Substance: EMTRICITABINE\TENOFOVIR DISOPROXIL FUMARATE
     Route: 048
     Dates: end: 20161004
  2. NORVASC [Concomitant]
     Active Substance: AMLODIPINE BESYLATE
  3. LISINOPRIL (PRINIVIL,ZESTRIL) [Concomitant]
  4. OMEGA 3 FISH OIL (SEA OMEGA) [Concomitant]
  5. ZOFRAN [Concomitant]
     Active Substance: ONDANSETRON HYDROCHLORIDE
  6. ISENTRESS [Concomitant]
     Active Substance: RALTEGRAVIR POTASSIUM
  7. NORVIR [Concomitant]
     Active Substance: RITONAVIR
  8. THERAPEUTIC MULTIVITAMIN (THERAGRAN) [Concomitant]
  9. DICYCLOMINE (BENTYL) [Concomitant]
  10. LEVAQUIN [Concomitant]
     Active Substance: LEVOFLOXACIN
  11. METOPROLOL SUCCINATE (TOPROL XL) [Concomitant]

REACTIONS (14)
  - Nephrolithiasis [None]
  - Fluid retention [None]
  - Hypoxia [None]
  - Restlessness [None]
  - Hepatic steatosis [None]
  - General physical health deterioration [None]
  - Abdominal pain [None]
  - Acute kidney injury [None]
  - Hypotension [None]
  - Haematemesis [None]
  - Flank pain [None]
  - Discomfort [None]
  - Interstitial lung disease [None]
  - Acidosis [None]

NARRATIVE: CASE EVENT DATE: 20161005
